FAERS Safety Report 13596461 (Version 1)
Quarter: 2017Q2

REPORT INFORMATION
  Report Type: Spontaneous
  Country: AE (occurrence: AE)
  Receive Date: 20170531
  Receipt Date: 20170531
  Transmission Date: 20170830
  Serious: Yes (Hospitalization)
  Sender: FDA-Public Use
  Company Number: AE-GLENMARK PHARMACEUTICALS-2017GMK027689

PATIENT
  Age: 21 Year
  Sex: Female
  Weight: 43 kg

DRUGS (4)
  1. TOPIRAMATE. [Suspect]
     Active Substance: TOPIRAMATE
     Indication: EPILEPSY
     Dosage: 60 DF, UNK
     Route: 065
  2. LEVETIRACETAM. [Suspect]
     Active Substance: LEVETIRACETAM
     Indication: EPILEPSY
     Dosage: 40 DF, UNK
     Route: 065
  3. TOPIRAMATE. [Suspect]
     Active Substance: TOPIRAMATE
     Dosage: 7 DF, UNK
     Route: 065
  4. LEVETIRACETAM. [Suspect]
     Active Substance: LEVETIRACETAM
     Dosage: 30 DF, UNK
     Route: 065

REACTIONS (2)
  - Toxicity to various agents [Recovered/Resolved]
  - Intentional overdose [Recovered/Resolved]
